FAERS Safety Report 12517084 (Version 1)
Quarter: 2016Q2

REPORT INFORMATION
  Report Type: Spontaneous
  Country: US (occurrence: US)
  Receive Date: 20160630
  Receipt Date: 20160630
  Transmission Date: 20160815
  Serious: No
  Sender: FDA-Public Use
  Company Number: US-PFIZER INC-2016292334

PATIENT
  Age: 64 Year
  Sex: Female
  Weight: 63.5 kg

DRUGS (16)
  1. TRAMADOL. [Concomitant]
     Active Substance: TRAMADOL
     Indication: PAIN
     Dosage: 37.5/325, TWICE A DAY, ONCE IN THE MORNING AND ONCE IN THE NIGHT
     Route: 048
     Dates: start: 201512
  2. ZOVIRAX [Concomitant]
     Active Substance: ACYCLOVIR
     Indication: HERPES ZOSTER
     Dosage: 400 MG, 2X/DAY
     Route: 048
     Dates: start: 201411
  3. METHOTREXATE [Concomitant]
     Active Substance: METHOTREXATE
     Indication: ARTHRITIS
     Dosage: 2.5MG, TABLETS, ONCE A WEEK, TAKING 6 TABLETS ONCE A WEEK
     Route: 048
     Dates: start: 201604
  4. ZANTAC [Concomitant]
     Active Substance: RANITIDINE HYDROCHLORIDE
     Indication: GASTROOESOPHAGEAL REFLUX DISEASE
     Dosage: 300 MG, ONCE A DAY
     Route: 048
     Dates: start: 2010
  5. ZANTAC [Concomitant]
     Active Substance: RANITIDINE HYDROCHLORIDE
     Indication: PRURITUS
  6. ATARAX [Concomitant]
     Active Substance: HYDROXYZINE\HYDROXYZINE HYDROCHLORIDE
     Indication: PRURITUS
     Dosage: 25 MG, AS NEEDED
     Dates: start: 2010
  7. ROBAXIN [Concomitant]
     Active Substance: METHOCARBAMOL
     Indication: MUSCLE SPASMS
     Dosage: 750 MG, TWICE A DAY
     Route: 048
     Dates: start: 201512
  8. PROZAC [Concomitant]
     Active Substance: FLUOXETINE HYDROCHLORIDE
     Indication: DEPRESSION
     Dosage: 20 MG, ONCE A DAY, TAKE IT AT NIGHT
     Route: 048
     Dates: start: 2012
  9. ARTHRI-D3 [Concomitant]
     Dosage: 2 TABLETS, TWICE A DAY
  10. FOLIC ACID. [Concomitant]
     Active Substance: FOLIC ACID
     Dosage: 1 MG, ONCE A DAY
     Route: 048
  11. METHOTREXATE [Concomitant]
     Active Substance: METHOTREXATE
     Indication: STENOSIS
  12. CELEBREX [Concomitant]
     Active Substance: CELECOXIB
     Indication: ARTHRITIS
     Dosage: 200 MG, 2X/DAY
     Route: 048
     Dates: start: 2014
  13. PROTONIX [Concomitant]
     Active Substance: PANTOPRAZOLE SODIUM
     Indication: GASTROOESOPHAGEAL REFLUX DISEASE
     Dosage: 40 MG, ONCE A DAY IN MORNING
     Dates: start: 2013
  14. NEURONTIN [Suspect]
     Active Substance: GABAPENTIN
     Indication: ARTHRITIS
     Dosage: 100 MG, 3X/DAY
     Route: 048
     Dates: start: 201605
  15. NEURONTIN [Suspect]
     Active Substance: GABAPENTIN
     Indication: NEURALGIA
  16. ZYRTEC [Concomitant]
     Active Substance: CETIRIZINE HYDROCHLORIDE
     Indication: PRURITUS
     Dosage: 10 MG, AT NIGHT
     Route: 048
     Dates: start: 2010

REACTIONS (1)
  - Drug ineffective for unapproved indication [Unknown]

NARRATIVE: CASE EVENT DATE: 201605
